FAERS Safety Report 11306395 (Version 3)
Quarter: 2015Q3

REPORT INFORMATION
  Report Type: Spontaneous
  Country: JP (occurrence: JP)
  Receive Date: 20150723
  Receipt Date: 20150831
  Transmission Date: 20151125
  Serious: Yes (Death, Life-Threatening, Hospitalization, Other)
  Sender: FDA-Public Use
  Company Number: JP-GLAXOSMITHKLINE-JP2015JPN104551

PATIENT
  Age: 49 Year
  Sex: Male
  Weight: 80 kg

DRUGS (13)
  1. FAMOTIDINE OD [Concomitant]
     Active Substance: FAMOTIDINE
     Indication: CHRONIC GASTRITIS
     Dosage: 20 MG, QD
     Dates: start: 20140627, end: 20140723
  2. DOCETAXEL. [Concomitant]
     Active Substance: DOCETAXEL
     Indication: ANGIOSARCOMA
     Dosage: UNK
  3. SENNOSIDE [Concomitant]
     Active Substance: SENNOSIDES
     Indication: CONSTIPATION
     Dosage: 12 MG, QD
     Dates: start: 20140627, end: 20140825
  4. ALLOID G [Concomitant]
     Active Substance: SODIUM ALGINATE
     Indication: RADIATION OESOPHAGITIS
     Dosage: 10 ML, TID
     Dates: start: 20140627, end: 20140822
  5. VOTRIENT [Suspect]
     Active Substance: PAZOPANIB HYDROCHLORIDE
     Indication: ANGIOSARCOMA METASTATIC
     Dosage: 800 MG, QD
     Route: 048
     Dates: start: 20140627, end: 20140826
  6. MS CONTIN [Concomitant]
     Active Substance: MORPHINE SULFATE
     Indication: ANGIOSARCOMA
     Dosage: 10 MG, BID
     Dates: start: 20140711
  7. MS CONTIN [Concomitant]
     Active Substance: MORPHINE SULFATE
     Dosage: 20 MG, BID
     Dates: start: 20140822, end: 20140825
  8. LOXOPROFEN [Concomitant]
     Active Substance: LOXOPROFEN
     Indication: ANGIOSARCOMA
     Dosage: 60 MG, TID
     Dates: start: 20140627, end: 20140825
  9. ALLOPURINOL. [Concomitant]
     Active Substance: ALLOPURINOL
     Indication: HYPERURICAEMIA
     Dosage: 100 MG, QD
     Dates: start: 20140627, end: 20140826
  10. SUCRALFATE HYDRATE [Concomitant]
     Indication: RADIATION OESOPHAGITIS
     Dosage: 10 ML, TID
     Dates: start: 20140627, end: 20140723
  11. MAGLAX [Concomitant]
     Active Substance: MAGNESIUM OXIDE
     Indication: CONSTIPATION
     Dosage: 500 MG, TID
     Dates: start: 20140627, end: 20140825
  12. OPSO [Concomitant]
     Active Substance: MORPHINE HYDROCHLORIDE
     Indication: ANGIOSARCOMA
     Dosage: 5 MG, TID
     Dates: start: 20140627, end: 20140825
  13. NEXIUM [Concomitant]
     Active Substance: ESOMEPRAZOLE MAGNESIUM
     Indication: CHRONIC GASTRITIS
     Dosage: 20 MG, QD
     Dates: start: 20140723, end: 20140824

REACTIONS (10)
  - Dyspnoea [Unknown]
  - Abdominal pain [Unknown]
  - Intra-abdominal haemorrhage [Fatal]
  - Angiosarcoma metastatic [Fatal]
  - General physical health deterioration [Unknown]
  - Metastases to liver [Unknown]
  - Haemoglobin decreased [Unknown]
  - Palpitations [Unknown]
  - Shock haemorrhagic [Fatal]
  - Anaemia [Not Recovered/Not Resolved]

NARRATIVE: CASE EVENT DATE: 201408
